FAERS Safety Report 17414533 (Version 2)
Quarter: 2020Q1

REPORT INFORMATION
  Report Type: Spontaneous
  Country: US (occurrence: US)
  Receive Date: 20200213
  Receipt Date: 20200312
  Transmission Date: 20200409
  Serious: Yes (Hospitalization)
  Sender: FDA-Public Use
  Company Number: US-PFIZER INC-2020061543

PATIENT
  Age: 81 Year
  Sex: Male
  Weight: 88.54 kg

DRUGS (2)
  1. VYNDAMAX [Suspect]
     Active Substance: TAFAMIDIS
     Indication: FAMILIAL AMYLOIDOSIS
     Dosage: 61 MG, DAILY
     Route: 048
     Dates: start: 201911
  2. VYNDAMAX [Suspect]
     Active Substance: TAFAMIDIS
     Dosage: 61 MG, DAILY
     Route: 048
     Dates: start: 201912

REACTIONS (5)
  - Oedema peripheral [Recovered/Resolved]
  - Malaise [Unknown]
  - Weight decreased [Unknown]
  - Pulmonary oedema [Unknown]
  - Troponin increased [Recovered/Resolved]
